FAERS Safety Report 18752405 (Version 2)
Quarter: 2021Q1

REPORT INFORMATION
  Report Type: Spontaneous
  Country: US (occurrence: US)
  Receive Date: 20210118
  Receipt Date: 20210125
  Transmission Date: 20210419
  Serious: Yes (Hospitalization)
  Sender: FDA-Public Use
  Company Number: US-PFIZER INC-2021020780

PATIENT
  Age: 24 Year
  Sex: Female
  Weight: 109 kg

DRUGS (3)
  1. DROPERIDOL. [Suspect]
     Active Substance: DROPERIDOL
     Dosage: 3.75 MG
  2. HYDROMORPHONE [Concomitant]
     Active Substance: HYDROMORPHONE
     Dosage: 1.5 MG
  3. MIDAZOLAM. [Concomitant]
     Active Substance: MIDAZOLAM
     Dosage: 4 MG

REACTIONS (2)
  - Ventricular arrhythmia [Unknown]
  - Cardiac arrest [Unknown]
